FAERS Safety Report 17194902 (Version 1)
Quarter: 2019Q4

REPORT INFORMATION
  Report Type: Report from Study
  Country: None (occurrence: FI)
  Receive Date: 20191224
  Receipt Date: 20191224
  Transmission Date: 20200122
  Serious: Yes (Other)
  Sender: FDA-Public Use
  Company Number: FI-ABBVIE-19K-055-2649619-00

PATIENT
  Age: 59 Year
  Sex: Female

DRUGS (5)
  1. METOJECT [Concomitant]
     Active Substance: METHOTREXATE SODIUM
     Indication: PRODUCT USED FOR UNKNOWN INDICATION
     Route: 058
  2. BURANA [Concomitant]
     Active Substance: IBUPROFEN
     Indication: PAIN
  3. PANADOL [Concomitant]
     Active Substance: ACETAMINOPHEN
     Indication: PAIN
  4. HUMIRA [Suspect]
     Active Substance: ADALIMUMAB
     Route: 058
  5. HUMIRA [Suspect]
     Active Substance: ADALIMUMAB
     Indication: PSORIATIC ARTHROPATHY
     Route: 058
     Dates: start: 20190108

REACTIONS (10)
  - Loss of personal independence in daily activities [Unknown]
  - Sinusitis [Recovered/Resolved]
  - Influenza [Unknown]
  - Gait disturbance [Unknown]
  - Inflammation [Recovered/Resolved]
  - Pain in extremity [Not Recovered/Not Resolved]
  - Morton^s neuralgia [Unknown]
  - Mobility decreased [Unknown]
  - Arthralgia [Not Recovered/Not Resolved]
  - Therapeutic product effect incomplete [Unknown]

NARRATIVE: CASE EVENT DATE: 2019
